FAERS Safety Report 12281017 (Version 1)
Quarter: 2016Q2

REPORT INFORMATION
  Report Type: Spontaneous
  Country: GB (occurrence: GB)
  Receive Date: 20160419
  Receipt Date: 20160419
  Transmission Date: 20160815
  Serious: Yes (Death, Hospitalization)
  Sender: FDA-Public Use
  Company Number: GB-HOSPIRA-3255751

PATIENT
  Age: 60 Year
  Sex: Male

DRUGS (2)
  1. OXALIPLATIN. [Suspect]
     Active Substance: OXALIPLATIN
     Indication: COLORECTAL CANCER METASTATIC
     Dosage: TOTAL OF 12 CYCLES
  2. CAPECITABINE. [Suspect]
     Active Substance: CAPECITABINE
     Indication: COLORECTAL CANCER METASTATIC
     Dosage: TOTAL OF 12 CYCLES

REACTIONS (6)
  - Hepatic failure [Fatal]
  - Stomal varices [Fatal]
  - Stoma site haemorrhage [Fatal]
  - Sepsis [Fatal]
  - Portal hypertension [Fatal]
  - Multiple organ dysfunction syndrome [Fatal]
